FAERS Safety Report 16264644 (Version 17)
Quarter: 2022Q1

REPORT INFORMATION
  Report Type: Spontaneous
  Country: US (occurrence: US)
  Receive Date: 20190502
  Receipt Date: 20220310
  Transmission Date: 20220423
  Serious: Yes (Other)
  Sender: FDA-Public Use
  Company Number: US-PFIZER INC-2019184100

PATIENT
  Age: 75 Year
  Sex: Female

DRUGS (2)
  1. PREMARIN [Suspect]
     Active Substance: ESTROGENS, CONJUGATED
     Dosage: 1 ML, (INSERT 1 ML VAGINALLY THREE TIMES A WEEK)
     Route: 067
     Dates: end: 202103
  2. PRISTIQ EXTENDED-RELEASE [Suspect]
     Active Substance: DESVENLAFAXINE SUCCINATE
     Dosage: UNK

REACTIONS (9)
  - Urinary tract infection [Not Recovered/Not Resolved]
  - Burns second degree [Unknown]
  - Piriformis syndrome [Unknown]
  - Off label use [Unknown]
  - Vaginal infection [Unknown]
  - Vaginal disorder [Unknown]
  - Malaise [Unknown]
  - Cystitis [Unknown]
  - Hypertension [Unknown]
